FAERS Safety Report 6528108-5 (Version None)
Quarter: 2010Q1

REPORT INFORMATION
  Report Type: 
  Country: None (occurrence: None)
  Receive Date: 20100105
  Receipt Date: 20100105
  Transmission Date: 20100710
  Serious: Yes (Hospitalization)
  Sender: FDA-Public Use
  Company Number: None

PATIENT
  Sex: Male
  Weight: 64.7 kg

DRUGS (3)
  1. THALIDOMIDE [Suspect]
     Dosage: 3100 MG
  2. CELEBREX [Suspect]
     Dosage: 10800 MG
  3. TEMOZOLOMIDE [Suspect]
     Dosage: 3380 MG

REACTIONS (4)
  - BLOOD PRESSURE INCREASED [None]
  - BRADYCARDIA [None]
  - HYPOTENSION [None]
  - SYNCOPE [None]
